FAERS Safety Report 25612587 (Version 1)
Quarter: 2025Q3

REPORT INFORMATION
  Report Type: Other
  Country: AU (occurrence: AU)
  Receive Date: 20250728
  Receipt Date: 20250728
  Transmission Date: 20251021
  Serious: Yes (Other)
  Sender: NOVA LABORATORIES LIMITED
  Company Number: AU-Nova Laboratories Limited-2181352

PATIENT
  Age: 4 Year

DRUGS (6)
  1. PURIXAN [Suspect]
     Active Substance: MERCAPTOPURINE
     Indication: Colitis ulcerative
  2. CIPROFLOXACIN [Suspect]
     Active Substance: CIPROFLOXACIN
  3. TACROLIMUS [Suspect]
     Active Substance: TACROLIMUS
  4. METHYLPREDNISOLONE [Suspect]
     Active Substance: METHYLPREDNISOLONE
  5. MESALAMINE [Suspect]
     Active Substance: MESALAMINE
  6. INFLIXIMAB [Suspect]
     Active Substance: INFLIXIMAB

REACTIONS (2)
  - Treatment failure [Unknown]
  - Off label use [Unknown]
